FAERS Safety Report 9967856 (Version 1)
Quarter: 2014Q1

REPORT INFORMATION
  Report Type: Report from Study
  Country: US (occurrence: US)
  Receive Date: 20140306
  Receipt Date: 20140306
  Transmission Date: 20141002
  Serious: No
  Sender: FDA-Public Use
  Company Number: US-ABBVIE-13P-163-1147325-00

PATIENT
  Age: 31 Year
  Sex: Female

DRUGS (9)
  1. HUMIRA [Suspect]
     Indication: CROHN^S DISEASE
     Dates: start: 20130910, end: 20130910
  2. HUMIRA [Suspect]
  3. PENTASA [Concomitant]
     Indication: CROHN^S DISEASE
     Dosage: 500 MG 3 PILLS TWICE DAILY
  4. DEPAKOTE [Concomitant]
     Indication: BIPOLAR DISORDER
  5. LAMICTAL [Concomitant]
     Indication: BIPOLAR DISORDER
     Dosage: 1.5 TABLETS 200 MG DAILY
  6. SYNTHROID [Concomitant]
     Indication: HYPOTHYROIDISM
     Dosage: 175 MG IN THE MORNING
  7. FISH OIL [Concomitant]
     Indication: MOOD ALTERED
     Dosage: 3 CAPSULES 1200 MG
  8. FISH OIL [Concomitant]
     Indication: INFLAMMATION
  9. OMEPRAZOLE [Concomitant]
     Indication: PROPHYLAXIS AGAINST GASTROINTESTINAL ULCER

REACTIONS (2)
  - Fatigue [Not Recovered/Not Resolved]
  - Skin burning sensation [Not Recovered/Not Resolved]
